FAERS Safety Report 6256936-2 (Version None)
Quarter: 2009Q3

REPORT INFORMATION
  Report Type: 
  Country: None (occurrence: None)
  Receive Date: 20090706
  Receipt Date: 20090702
  Transmission Date: 20100115
  Serious: Yes (Life-Threatening, Other)
  Sender: FDA-Public Use
  Company Number: PHHY2009CA25896

PATIENT
  Sex: Female

DRUGS (1)
  1. CLOZARIL [Suspect]
     Indication: SUICIDAL IDEATION
     Dosage: 150 MG, AT BED TIME
     Route: 048
     Dates: start: 20090112

REACTIONS (1)
  - BREAST CANCER [None]
